FAERS Safety Report 20712235 (Version 2)
Quarter: 2022Q3

REPORT INFORMATION
  Report Type: Spontaneous
  Country: CA (occurrence: CA)
  Receive Date: 20220414
  Receipt Date: 20220727
  Transmission Date: 20221027
  Serious: Yes (Hospitalization, Other)
  Sender: FDA-Public Use
  Company Number: CA-BAXTER-2022BAX007822

PATIENT
  Age: 33 Year
  Sex: Male

DRUGS (39)
  1. CYCLOPHOSPHAMIDE [Suspect]
     Active Substance: CYCLOPHOSPHAMIDE
     Indication: Haemophagocytic lymphohistiocytosis
     Dosage: UNK, CYCLICAL
     Route: 065
  2. CYCLOPHOSPHAMIDE [Suspect]
     Active Substance: CYCLOPHOSPHAMIDE
     Indication: Lymphoma
  3. DOXORUBICIN HYDROCHLORIDE [Suspect]
     Active Substance: DOXORUBICIN HYDROCHLORIDE
     Indication: Haemophagocytic lymphohistiocytosis
     Dosage: UNK, CYCLICAL
     Route: 065
  4. DOXORUBICIN [Suspect]
     Active Substance: DOXORUBICIN
     Indication: Haemophagocytic lymphohistiocytosis
     Dosage: DOSAGE FORM: SOLUTION INTRAVENOUS
     Route: 065
  5. DOXORUBICIN [Suspect]
     Active Substance: DOXORUBICIN
     Indication: Lymphoma
  6. ETOPOSIDE [Suspect]
     Active Substance: ETOPOSIDE
     Indication: Haemophagocytic lymphohistiocytosis
     Dosage: 150 MG/M2, CYCLICAL, DOSAGE FORM: NOT SPECIFIED
     Route: 065
  7. ETOPOSIDE [Suspect]
     Active Substance: ETOPOSIDE
     Indication: Lymphoma
     Dosage: 75 MG/M2, CYCLICAL, DOSAGE FORM: NOT SPECIFIED
     Route: 065
  8. ETOPOSIDE [Suspect]
     Active Substance: ETOPOSIDE
     Dosage: 150 MG/M2, DOSAGE FORM: NOT SPECIFIED
     Route: 065
  9. ETOPOSIDE [Suspect]
     Active Substance: ETOPOSIDE
     Dosage: 75 MG/M2,
     Route: 065
  10. ETOPOSIDE [Suspect]
     Active Substance: ETOPOSIDE
     Dosage: 150 MG/M2,
     Route: 065
  11. PREDNISOLONE [Suspect]
     Active Substance: PREDNISOLONE
     Indication: Haemophagocytic lymphohistiocytosis
     Dosage: UNK, CYCLICAL, DOSAGE FORM: NOT SPECIFIED
     Route: 065
  12. PREDNISOLONE [Suspect]
     Active Substance: PREDNISOLONE
     Indication: Lymphoma
  13. PREDNISONE [Suspect]
     Active Substance: PREDNISONE
     Indication: Haemophagocytic lymphohistiocytosis
     Dosage: UNK, CYCLICAL, DOSAGE FORM: NOT SPECIFIED
     Route: 065
  14. RUXOLITINIB [Suspect]
     Active Substance: RUXOLITINIB
     Indication: Haemophagocytic lymphohistiocytosis
     Dosage: 15 MG, BID, DOSAGE FORM: TABLETS
     Route: 065
  15. METHOTREXATE [Suspect]
     Active Substance: METHOTREXATE
     Indication: Peripheral T-cell lymphoma unspecified
     Dosage: UNK, PRN, DOSAGE FORM: NOT SPECIFIED
     Route: 065
  16. METHOTREXATE [Suspect]
     Active Substance: METHOTREXATE
     Indication: Haemophagocytic lymphohistiocytosis
     Dosage: UNK,DOSAGE FORM: NOT SPECIFIED
     Route: 048
  17. METHOTREXATE [Suspect]
     Active Substance: METHOTREXATE
     Dosage: UNK
     Route: 065
  18. VINCRISTINE SULFATE [Suspect]
     Active Substance: VINCRISTINE SULFATE
     Indication: Haemophagocytic lymphohistiocytosis
     Dosage: UNK, CYCLICAL, DOSAGE FORM: NOT SPECIFIED
     Route: 065
  19. DEXAMETHASONE SODIUM PHOSPHATE [Suspect]
     Active Substance: DEXAMETHASONE SODIUM PHOSPHATE
     Indication: Haemophagocytic lymphohistiocytosis
     Dosage: UNK, PRN, DOSAGE FORM: SOLUTION INTRA-ARTICULAR
     Route: 065
  20. DEXAMETHASONE SODIUM PHOSPHATE [Suspect]
     Active Substance: DEXAMETHASONE SODIUM PHOSPHATE
     Indication: Lymphoma
  21. RUXOLITINIB [Suspect]
     Active Substance: RUXOLITINIB
     Indication: Lymphoma
     Dosage: 10 MG, PRN
     Route: 065
  22. RUXOLITINIB [Suspect]
     Active Substance: RUXOLITINIB
     Indication: Haemophagocytic lymphohistiocytosis
     Dosage: 15 MG, PRN
     Route: 065
  23. RUXOLITINIB [Suspect]
     Active Substance: RUXOLITINIB
     Dosage: 15 MG, PRN
     Route: 065
  24. RUXOLITINIB [Suspect]
     Active Substance: RUXOLITINIB
     Dosage: 10 MG, PRN
     Route: 065
  25. RUXOLITINIB [Suspect]
     Active Substance: RUXOLITINIB
     Dosage: UNK
     Route: 065
  26. RUXOLITINIB [Suspect]
     Active Substance: RUXOLITINIB
     Dosage: UNK
     Route: 065
  27. VINCRISTINE [Suspect]
     Active Substance: VINCRISTINE
     Indication: Haemophagocytic lymphohistiocytosis
     Dosage: UNK, PRN
     Route: 065
  28. VINCRISTINE [Suspect]
     Active Substance: VINCRISTINE
     Indication: Lymphoma
  29. DEXAMETHASONE [Suspect]
     Active Substance: DEXAMETHASONE
     Indication: Haemophagocytic lymphohistiocytosis
     Dosage: 1 MG, QD
     Route: 065
  30. DEXAMETHASONE [Suspect]
     Active Substance: DEXAMETHASONE
     Dosage: 16 MG, QD
     Route: 065
  31. DEXAMETHASONE [Suspect]
     Active Substance: DEXAMETHASONE
     Dosage: 6 MG, QD
     Route: 065
  32. DEXAMETHASONE [Suspect]
     Active Substance: DEXAMETHASONE
     Dosage: 8 MG, QD
     Route: 065
  33. ALEMTUZUMAB [Suspect]
     Active Substance: ALEMTUZUMAB
     Indication: Haemophagocytic lymphohistiocytosis
     Dosage: DOSAGE FORM: SOLUTION INTRAVENOUS
     Route: 065
  34. PREDNISONE [Suspect]
     Active Substance: PREDNISONE
     Indication: Haemophagocytic lymphohistiocytosis
     Route: 065
  35. DEXAMETHASONE [Concomitant]
     Active Substance: DEXAMETHASONE
     Indication: Product used for unknown indication
     Dosage: UNK, PRN, DOSAGE FORM: NOT SPECIFIED
     Route: 065
  36. ALEMTUZUMAB [Concomitant]
     Active Substance: ALEMTUZUMAB
     Indication: Retroperitoneal haemorrhage
     Dosage: UNK, PRN, DOSAGE FORM: SOLUTION INTRAVENOUS
     Route: 065
  37. ALEMTUZUMAB [Concomitant]
     Active Substance: ALEMTUZUMAB
     Indication: Disseminated intravascular coagulation
  38. GRANULOCYTE COLONY-STIMULATING FACTOR NOS [Concomitant]
     Active Substance: GRANULOCYTE COLONY-STIMULATING FACTOR NOS
     Indication: Product used for unknown indication
     Dosage: UNK, PRN, DOSAGE FORM: NOT SPECIFIED
     Route: 065
  39. METHOTREXATE [Concomitant]
     Active Substance: METHOTREXATE
     Indication: Product used for unknown indication
     Dosage: UNK, PRN, DOSAGE FORM: NOT SPECIFIED
     Route: 065

REACTIONS (16)
  - IIIrd nerve paralysis [Recovered/Resolved]
  - Product use in unapproved indication [Recovered/Resolved]
  - Retroperitoneal haemorrhage [Recovered/Resolved]
  - Vascular pseudoaneurysm [Recovered/Resolved]
  - Off label use [Unknown]
  - Retroperitoneal haematoma [Unknown]
  - Abscess limb [Recovered/Resolved]
  - Enterococcal bacteraemia [Recovered/Resolved]
  - Haematoma infection [Recovered/Resolved]
  - Abdominal pain [Recovered/Resolved]
  - Cytomegalovirus infection reactivation [Recovered/Resolved]
  - Disseminated intravascular coagulation [Recovered/Resolved]
  - Pneumocystis jirovecii pneumonia [Recovered/Resolved]
  - Pneumonitis [Recovered/Resolved]
  - Enterococcal infection [Unknown]
  - Pathogen resistance [Unknown]
